FAERS Safety Report 11790760 (Version 1)
Quarter: 2015Q4

REPORT INFORMATION
  Report Type: Spontaneous
  Country: US (occurrence: US)
  Receive Date: 20151201
  Receipt Date: 20151201
  Transmission Date: 20160305
  Serious: No
  Sender: FDA-Public Use
  Company Number: US-BAYER-2015-480005

PATIENT
  Age: 85 Year
  Sex: Male
  Weight: 45.35 kg

DRUGS (3)
  1. SYNTHROID [Concomitant]
     Active Substance: LEVOTHYROXINE SODIUM
  2. METOPROLOL TARTRATE. [Concomitant]
     Active Substance: METOPROLOL TARTRATE
  3. MIRALAX [Suspect]
     Active Substance: POLYETHYLENE GLYCOL 3350
     Indication: CONSTIPATION
     Dosage: 1 - 1/2 DF, QOD
     Route: 048
     Dates: start: 20151020

REACTIONS (2)
  - Product use issue [Unknown]
  - Flatulence [Unknown]

NARRATIVE: CASE EVENT DATE: 20151020
